FAERS Safety Report 8166637-1 (Version None)
Quarter: 2012Q1

REPORT INFORMATION
  Report Type: 
  Country: None (occurrence: None)
  Receive Date: 20120223
  Receipt Date: 20120223
  Transmission Date: 20120608
  Serious: No
  Sender: FDA-Public Use
  Company Number: None

PATIENT
  Age: 11 Year
  Sex: Male
  Weight: 47.6277 kg

DRUGS (1)
  1. KID'S CREST SPARKLE FUN CREST [Suspect]
     Indication: DENTAL CARE
     Dosage: PEA SIZED 2X PER DAY DENTAL
     Route: 004
     Dates: start: 20120120, end: 20120124

REACTIONS (5)
  - SNEEZING [None]
  - NASAL CONGESTION [None]
  - CHAPPED LIPS [None]
  - LIP EXFOLIATION [None]
  - HYPERSENSITIVITY [None]
